FAERS Safety Report 9282128 (Version 3)
Quarter: 2013Q3

REPORT INFORMATION
  Report Type: Spontaneous
  Country: FR (occurrence: FR)
  Receive Date: 20130510
  Receipt Date: 20130708
  Transmission Date: 20140515
  Serious: Yes (Hospitalization, Other)
  Sender: FDA-Public Use
  Company Number: FR-AMGEN-FRASP2013031261

PATIENT
  Sex: Female

DRUGS (6)
  1. XGEVA [Suspect]
     Indication: METASTASES TO BONE
     Dosage: 120 MG, Q4WK
     Route: 058
     Dates: start: 20130222
  2. HERCEPTIN [Concomitant]
     Indication: BREAST CANCER METASTATIC
     Dosage: UNK UNK, Q3WK
     Route: 042
     Dates: start: 20120629, end: 20130426
  3. CLORAZEPATE [Concomitant]
     Dosage: 1
     Route: 048
  4. ESCITALOPRAM [Concomitant]
     Dosage: 1
     Route: 048
  5. OXYCODONE [Concomitant]
     Dosage: 2
     Route: 048
  6. PREGABALIN [Concomitant]
     Dosage: 2
     Route: 048

REACTIONS (3)
  - Pyrexia [Recovered/Resolved]
  - Hypotonia [Unknown]
  - Pain [Unknown]
